FAERS Safety Report 22617253 (Version 2)
Quarter: 2023Q4

REPORT INFORMATION
  Report Type: Spontaneous
  Country: US (occurrence: US)
  Receive Date: 20230620
  Receipt Date: 20231010
  Transmission Date: 20240109
  Serious: No
  Sender: FDA-Public Use
  Company Number: US-SA-SAC20230616000400

PATIENT
  Sex: Female
  Weight: 53 kg

DRUGS (7)
  1. DUPIXENT [Suspect]
     Active Substance: DUPILUMAB
     Indication: Dermatitis atopic
     Dosage: 300 MG, QOW
     Route: 058
  2. METHIMAZOLE [Concomitant]
     Active Substance: METHIMAZOLE
     Dosage: UNK
  3. NYSTATIN;TRIAMCINOLONE [Concomitant]
     Dosage: UNK
  4. TRIAMCINOLONE ACETONIDE [Concomitant]
     Active Substance: TRIAMCINOLONE ACETONIDE
     Dosage: UNK
  5. PREDNISONE [Concomitant]
     Active Substance: PREDNISONE
     Dosage: UNK
  6. BENZONATATE [Concomitant]
     Active Substance: BENZONATATE
     Dosage: UNK
  7. MIRENA [Concomitant]
     Active Substance: LEVONORGESTREL

REACTIONS (2)
  - Rash [Unknown]
  - Dermatitis atopic [Not Recovered/Not Resolved]
